FAERS Safety Report 9692876 (Version 2)
Quarter: 2013Q4

REPORT INFORMATION
  Report Type: Spontaneous
  Country: GB (occurrence: GB)
  Receive Date: 20131118
  Receipt Date: 20131118
  Transmission Date: 20140711
  Serious: Yes (Death, Other)
  Sender: FDA-Public Use
  Company Number: GB-DRREDDYS-GER/UKI/13/0033789

PATIENT
  Age: 68 Year
  Sex: Female

DRUGS (2)
  1. SERTRALINE [Suspect]
     Indication: PRODUCT USED FOR UNKNOWN INDICATION
     Dates: start: 20130325
  2. ANTIHYPERTENSIVE NOS [Concomitant]
     Indication: PRODUCT USED FOR UNKNOWN INDICATION

REACTIONS (6)
  - Completed suicide [Fatal]
  - Suicidal ideation [Unknown]
  - Depression [Unknown]
  - Condition aggravated [Unknown]
  - Insomnia [Unknown]
  - Agitation [Unknown]
